FAERS Safety Report 6504294-8 (Version None)
Quarter: 2009Q4

REPORT INFORMATION
  Report Type: 
  Country: None (occurrence: None)
  Receive Date: 20091215
  Receipt Date: 20091130
  Transmission Date: 20100525
  Serious: Yes (Other)
  Sender: FDA-Public Use
  Company Number: AUR-APL-2009-01459

PATIENT
  Age: 39 Year
  Sex: Male

DRUGS (3)
  1. RIBAVIRIN [Suspect]
     Indication: HEPATITIS C
     Dosage: 800MG - DAIILY - UNK
     Dates: start: 20081201
  2. AZATHIOPRINE [Suspect]
     Dosage: 2.5MG/KG/DAY - UNK
  3. PEG-INTRON [Suspect]
     Indication: HEPATITIS C
     Dosage: 1.5UG/KG/WEEK-UNK
     Dates: start: 20081201

REACTIONS (1)
  - PANCYTOPENIA [None]
